FAERS Safety Report 10838838 (Version 1)
Quarter: 2015Q1

REPORT INFORMATION
  Report Type: Spontaneous
  Country: CN (occurrence: CN)
  Receive Date: 20150219
  Receipt Date: 20150219
  Transmission Date: 20150721
  Serious: Yes (Death, Other)
  Sender: FDA-Public Use
  Company Number: PHHY2015CN010268

PATIENT
  Age: 33 Year
  Sex: Male
  Weight: 71 kg

DRUGS (3)
  1. CLONAZEPAM. [Concomitant]
     Active Substance: CLONAZEPAM
     Indication: SCHIZOPHRENIA, PARANOID TYPE
     Dosage: 1 MG, UNK
     Route: 030
  2. HALOPERIDOL. [Suspect]
     Active Substance: HALOPERIDOL
     Indication: SCHIZOPHRENIA, PARANOID TYPE
     Dosage: 5 MG, UNK
     Route: 030
  3. SCOPOLAMINE [Concomitant]
     Active Substance: SCOPOLAMINE
     Indication: SCHIZOPHRENIA, PARANOID TYPE
     Dosage: 0.3 MG, UNK
     Route: 030

REACTIONS (27)
  - Muscle rigidity [Fatal]
  - Arrhythmia [Fatal]
  - Labile blood pressure [Fatal]
  - Renal impairment [Fatal]
  - Tachycardia [Fatal]
  - Electrolyte imbalance [Fatal]
  - Pupils unequal [Fatal]
  - Rales [Fatal]
  - Pyrexia [Fatal]
  - Seizure [Fatal]
  - Trismus [Fatal]
  - Pallor [Fatal]
  - Ventricular extrasystoles [Fatal]
  - Hepatic function abnormal [Fatal]
  - Pulmonary congestion [Fatal]
  - Unresponsive to stimuli [Fatal]
  - Aggression [Fatal]
  - Brain oedema [Fatal]
  - Wolff-Parkinson-White syndrome [Unknown]
  - Loss of consciousness [Fatal]
  - Tachypnoea [Fatal]
  - Gaze palsy [Fatal]
  - Foaming at mouth [Fatal]
  - Breath sounds abnormal [Fatal]
  - Leukocytosis [Fatal]
  - Neuroleptic malignant syndrome [Fatal]
  - Pulmonary oedema [Fatal]
